FAERS Safety Report 12919111 (Version 1)
Quarter: 2016Q4

REPORT INFORMATION
  Report Type: Spontaneous
  Country: FR (occurrence: FR)
  Receive Date: 20161108
  Receipt Date: 20161108
  Transmission Date: 20170207
  Serious: Yes (Death, Hospitalization, Other)
  Sender: FDA-Public Use
  Company Number: FR-BRISTOL-MYERS SQUIBB COMPANY-BMS-2016-090938

PATIENT
  Age: 80 Year
  Sex: Male

DRUGS (7)
  1. ARANESP [Concomitant]
     Active Substance: DARBEPOETIN ALFA
     Indication: PRODUCT USED FOR UNKNOWN INDICATION
     Dosage: 40 ?G, QWK
     Route: 065
  2. KAYEXALATE [Concomitant]
     Active Substance: SODIUM POLYSTYRENE SULFONATE
     Indication: PRODUCT USED FOR UNKNOWN INDICATION
     Dosage: UNK, QD
     Route: 065
  3. COUMADINE [Suspect]
     Active Substance: WARFARIN SODIUM
     Indication: ATRIAL FIBRILLATION
     Dosage: UNK, QD
     Route: 048
     Dates: start: 20160725
  4. ZOLPIDEM [Concomitant]
     Active Substance: ZOLPIDEM\ZOLPIDEM TARTRATE
     Indication: PRODUCT USED FOR UNKNOWN INDICATION
     Dosage: 1 DF, QD
     Route: 065
  5. VENOFER [Concomitant]
     Active Substance: IRON SUCROSE
     Indication: PRODUCT USED FOR UNKNOWN INDICATION
     Dosage: 20 MG, UNK
     Route: 065
  6. UVEDOSE [Concomitant]
     Active Substance: CHOLECALCIFEROL
     Indication: PRODUCT USED FOR UNKNOWN INDICATION
     Dosage: 1 DF, Q2MO
     Route: 065
  7. NEURONTIN [Concomitant]
     Active Substance: GABAPENTIN
     Indication: PRODUCT USED FOR UNKNOWN INDICATION
     Dosage: 100 MG, UNK
     Route: 065

REACTIONS (11)
  - Abdominal pain upper [Unknown]
  - Melaena [Recovered/Resolved]
  - Anaemia [Recovered/Resolved]
  - Dialysis [Unknown]
  - Diarrhoea [Unknown]
  - Vomiting [Unknown]
  - Cardiac failure [Unknown]
  - Cardio-respiratory arrest [Recovered/Resolved]
  - Death [Fatal]
  - Hyperkalaemia [Unknown]
  - Packed red blood cell transfusion [Recovered/Resolved]

NARRATIVE: CASE EVENT DATE: 20160725
